FAERS Safety Report 15777956 (Version 3)
Quarter: 2019Q1

REPORT INFORMATION
  Report Type: Report from Study
  Country: US (occurrence: US)
  Receive Date: 20181231
  Receipt Date: 20190313
  Transmission Date: 20190417
  Serious: Yes (Other)
  Sender: FDA-Public Use
  Company Number: US-JAZZ-2018-US-018520

PATIENT
  Sex: Male

DRUGS (17)
  1. DICLOFENAC POTASSIUM. [Concomitant]
     Active Substance: DICLOFENAC POTASSIUM
  2. GRALISE [Concomitant]
     Active Substance: GABAPENTIN
  3. LOSARTAN AND HYDROCHLOROTHIAZIDE [Concomitant]
     Active Substance: HYDROCHLOROTHIAZIDE\LOSARTAN POTASSIUM
  4. XYREM [Suspect]
     Active Substance: SODIUM OXYBATE
     Dosage: 4 G, BID
     Route: 048
     Dates: start: 201808
  5. JANUVIA [Concomitant]
     Active Substance: SITAGLIPTIN PHOSPHATE
  6. NORCO [Concomitant]
     Active Substance: ACETAMINOPHEN\HYDROCODONE BITARTRATE
  7. AMITRIPTYLINE HCL [Concomitant]
     Active Substance: AMITRIPTYLINE
  8. ASPIRIN (E.C.) [Concomitant]
     Active Substance: ASPIRIN
  9. METFORMIN HCL [Concomitant]
     Active Substance: METFORMIN HYDROCHLORIDE
  10. XYREM [Suspect]
     Active Substance: SODIUM OXYBATE
     Indication: NARCOLEPSY
     Dosage: 2.25 G, BID
     Route: 048
     Dates: start: 201805, end: 201806
  11. ARMODAFINIL. [Concomitant]
     Active Substance: ARMODAFINIL
  12. OMEPRAZOLE. [Concomitant]
     Active Substance: OMEPRAZOLE
  13. RITALIN [Concomitant]
     Active Substance: METHYLPHENIDATE HYDROCHLORIDE
  14. VITAMIN D3 [Concomitant]
     Active Substance: CHOLECALCIFEROL
  15. SOMA [Concomitant]
     Active Substance: CARISOPRODOL
  16. ZOLPIDEM TARTRATE. [Concomitant]
     Active Substance: ZOLPIDEM TARTRATE
  17. XYREM [Suspect]
     Active Substance: SODIUM OXYBATE
     Dosage: DOSE ADJUSTMENT
     Route: 048
     Dates: start: 201806, end: 201808

REACTIONS (2)
  - Sinusitis [Unknown]
  - Nasopharyngitis [Unknown]

NARRATIVE: CASE EVENT DATE: 2018
